FAERS Safety Report 24800596 (Version 1)
Quarter: 2025Q1

REPORT INFORMATION
  Report Type: Spontaneous
  Country: US (occurrence: US)
  Receive Date: 20250102
  Receipt Date: 20250102
  Transmission Date: 20250409
  Serious: No
  Sender: MYLAN
  Company Number: US-MYLANLABS-2024M1114753

PATIENT
  Sex: Female

DRUGS (1)
  1. PREGABALIN [Suspect]
     Active Substance: PREGABALIN
     Indication: Product used for unknown indication
     Route: 065

REACTIONS (11)
  - Cyst [Unknown]
  - Skin irritation [Unknown]
  - Acne [Unknown]
  - Pustule [Unknown]
  - Papule [Unknown]
  - Fistula [Unknown]
  - Abscess drainage [Unknown]
  - Skin lesion [Unknown]
  - Skin mass [Unknown]
  - Rash [Unknown]
  - Pruritus [Unknown]
